FAERS Safety Report 12165561 (Version 2)
Quarter: 2016Q1

REPORT INFORMATION
  Report Type: Spontaneous
  Country: IN (occurrence: IN)
  Receive Date: 20160309
  Receipt Date: 20160309
  Transmission Date: 20160526
  Serious: Yes (Other)
  Sender: FDA-Public Use
  Company Number: IN-WATSON-2016-04868

PATIENT
  Age: 31 Year
  Sex: Male

DRUGS (5)
  1. CYCLOPHOSPHAMIDE. [Suspect]
     Active Substance: CYCLOPHOSPHAMIDE
     Indication: MENINGIOMA MALIGNANT
     Dosage: UNK, CYCLICAL
     Route: 065
  2. PACLITAXEL (UNKNOWN) [Suspect]
     Active Substance: PACLITAXEL
     Indication: MENINGIOMA MALIGNANT
     Dosage: UNK, CYCLICAL
     Route: 065
  3. CARBOPLATIN (UNKNOWN) [Suspect]
     Active Substance: CARBOPLATIN
     Indication: MENINGIOMA MALIGNANT
     Dosage: UNK, CYCLICAL
     Route: 065
  4. DOXORUBICIN (UNKNOWN) [Suspect]
     Active Substance: DOXORUBICIN
     Indication: MENINGIOMA MALIGNANT
     Dosage: UNK, CYCLICAL
     Route: 065
  5. VINCRISTINE (UNKNOWN) [Suspect]
     Active Substance: VINCRISTINE
     Indication: MENINGIOMA MALIGNANT
     Dosage: UNK, CYCLICAL
     Route: 065

REACTIONS (1)
  - Drug ineffective [Unknown]
